FAERS Safety Report 8364581-8 (Version None)
Quarter: 2012Q2

REPORT INFORMATION
  Report Type: 
  Country: None (occurrence: None)
  Receive Date: 20120516
  Receipt Date: 20120505
  Transmission Date: 20120825
  Serious: Yes (Hospitalization, Other)
  Sender: FDA-Public Use
  Company Number: US-ROCHE-1066281

PATIENT
  Age: 72 Year
  Sex: Female
  Weight: 112 kg

DRUGS (15)
  1. EMEND [Concomitant]
     Dosage: PRIOR TO CHEMO
  2. ZYRTEC [Concomitant]
  3. CISPLATIN [Suspect]
     Indication: NON-SMALL CELL LUNG CANCER
     Dosage: OVER 60 MINS, ON DAY 1
     Route: 042
     Dates: start: 20100707
  4. DECADRON [Concomitant]
     Dosage: STARTING DAY BEFORE CHEMO AND TAKE FOR A TOTAL OF 5 DAYS WITH EACH CHEMO
  5. EMEND [Concomitant]
     Dosage: ON DAY 2 AND 3 OF CHEMO
  6. LIPITOR [Concomitant]
  7. MAVIK [Concomitant]
  8. FOLVITE [Concomitant]
  9. ZIAC [Concomitant]
  10. AVASTIN [Suspect]
     Indication: NON-SMALL CELL LUNG CANCER
     Dosage: OVER 30-90 MIN, ON DAY 1
     Route: 042
     Dates: start: 20100707
  11. ACETAMINOPHEN [Concomitant]
  12. XANAX [Concomitant]
     Dosage: UPTO 3 TIMES PER DAY
  13. PEMETREXED DISODIUM [Suspect]
     Indication: NON-SMALL CELL LUNG CANCER
     Dosage: OVER 10 MIN, ON DAY 1
     Route: 042
     Dates: start: 20100707
  14. ASPIRIN [Concomitant]
  15. FOSAMAX [Concomitant]

REACTIONS (2)
  - CONVULSION [None]
  - HEADACHE [None]
